FAERS Safety Report 7766113-1 (Version None)
Quarter: 2011Q3

REPORT INFORMATION
  Report Type: 
  Country: None (occurrence: None)
  Receive Date: 20110921
  Receipt Date: 20110912
  Transmission Date: 20111222
  Serious: Yes (Hospitalization, Other)
  Sender: FDA-Public Use
  Company Number: US-B.I. PHARMACEUTICALS,INC./RIDGEFIELD-2011-BP-19608BP

PATIENT
  Age: 66 Year
  Sex: Male

DRUGS (10)
  1. ZEMPLAR [Concomitant]
  2. LASIX [Concomitant]
     Dosage: 160 MG
  3. PRADAXA [Suspect]
     Indication: ATRIAL FIBRILLATION
     Dosage: 300 MG
     Route: 048
     Dates: start: 20110714, end: 20110719
  4. METOLAZONE [Concomitant]
  5. LIPITOR [Concomitant]
     Dosage: 40 MG
  6. COREG [Concomitant]
     Dosage: 12.5 MG
  7. COUMADIN [Suspect]
     Indication: ATRIAL FIBRILLATION
     Route: 048
     Dates: start: 20110714, end: 20110719
  8. RAMIPRIL [Concomitant]
     Dosage: 5 MG
  9. TAZTIA XT [Concomitant]
     Dosage: 240 MG
  10. AMLODIPINE [Concomitant]
     Dosage: 10 MG

REACTIONS (3)
  - GASTROINTESTINAL HAEMORRHAGE [None]
  - ANTICOAGULATION DRUG LEVEL ABOVE THERAPEUTIC [None]
  - RENAL FAILURE ACUTE [None]
